FAERS Safety Report 21492486 (Version 1)
Quarter: 2022Q4

REPORT INFORMATION
  Report Type: Spontaneous
  Country: US (occurrence: US)
  Receive Date: 20221021
  Receipt Date: 20221021
  Transmission Date: 20230113
  Serious: Yes (Other)
  Sender: FDA-Public Use
  Company Number: US-SA-SAC20221019000316

PATIENT
  Age: 61 Year
  Sex: Female

DRUGS (2)
  1. ALLEGRA [Suspect]
     Active Substance: FEXOFENADINE HYDROCHLORIDE
     Dosage: UNK
     Route: 065
  2. IBRANCE [Suspect]
     Active Substance: PALBOCICLIB
     Dosage: 1 DF, QD, (THROUGH 21 OF EACH 28 DAY CYCLE)
     Dates: start: 20220815

REACTIONS (7)
  - Brain operation [Unknown]
  - Hypersensitivity [Unknown]
  - COVID-19 [Unknown]
  - Alopecia [Not Recovered/Not Resolved]
  - Upper-airway cough syndrome [Not Recovered/Not Resolved]
  - Rash [Unknown]
  - Nasal congestion [Unknown]
